FAERS Safety Report 13679084 (Version 1)
Quarter: 2017Q2

REPORT INFORMATION
  Report Type: Report from Study
  Country: PA (occurrence: PA)
  Receive Date: 20170622
  Receipt Date: 20170622
  Transmission Date: 20170830
  Serious: Yes (Other)
  Sender: FDA-Public Use
  Company Number: PHHY2017PA016352

PATIENT
  Age: 62 Year
  Sex: Male

DRUGS (8)
  1. SANDOSTATIN LAR DEPOT [Suspect]
     Active Substance: OCTREOTIDE ACETATE
     Dosage: UNK
     Route: 065
     Dates: start: 20170316
  2. AFINITOR [Suspect]
     Active Substance: EVEROLIMUS
     Dosage: UNK
     Route: 065
     Dates: start: 20170613
  3. SANDOSTATIN LAR DEPOT [Suspect]
     Active Substance: OCTREOTIDE ACETATE
     Dosage: UNK UNK, QMO
     Route: 065
     Dates: start: 20170216
  4. AFINITOR [Suspect]
     Active Substance: EVEROLIMUS
     Dosage: UNK
     Route: 048
     Dates: start: 20170307
  5. TASIGNA [Suspect]
     Active Substance: NILOTINIB
     Indication: PANCREATIC NEUROENDOCRINE TUMOUR
     Route: 065
  6. AFINITOR [Suspect]
     Active Substance: EVEROLIMUS
     Indication: PANCREATIC NEUROENDOCRINE TUMOUR
     Dosage: 10 MG, QD
     Route: 048
     Dates: start: 201606
  7. SANDOSTATIN LAR DEPOT [Suspect]
     Active Substance: OCTREOTIDE ACETATE
     Dosage: UNK
     Route: 065
     Dates: start: 20170515
  8. SANDOSTATIN LAR DEPOT [Suspect]
     Active Substance: OCTREOTIDE ACETATE
     Indication: PANCREATIC NEUROENDOCRINE TUMOUR
     Dosage: UNK UNK, QMO
     Route: 065
     Dates: start: 201607

REACTIONS (23)
  - Stomatitis [Recovering/Resolving]
  - Conjunctivitis [Not Recovered/Not Resolved]
  - Nasal congestion [Unknown]
  - General physical health deterioration [Unknown]
  - Tumour pain [Unknown]
  - Eye pruritus [Not Recovered/Not Resolved]
  - Product use in unapproved indication [Unknown]
  - Malignant neoplasm progression [Unknown]
  - Vomiting [Unknown]
  - Abdominal pain upper [Unknown]
  - Stomatitis [Recovered/Resolved]
  - Abdominal pain [Recovered/Resolved]
  - Abnormal sensation in eye [Not Recovered/Not Resolved]
  - Viral upper respiratory tract infection [Unknown]
  - Pancreatic neuroendocrine tumour [Unknown]
  - Malaise [Unknown]
  - Cheilitis [Unknown]
  - Vision blurred [Not Recovered/Not Resolved]
  - Oral pain [Unknown]
  - Oral disorder [Recovering/Resolving]
  - Dry mouth [Unknown]
  - Oral disorder [Recovered/Resolved]
  - Nausea [Not Recovered/Not Resolved]

NARRATIVE: CASE EVENT DATE: 201702
